FAERS Safety Report 7657504-8 (Version None)
Quarter: 2011Q3

REPORT INFORMATION
  Report Type: 
  Country: None (occurrence: None)
  Receive Date: 20110804
  Receipt Date: 20110802
  Transmission Date: 20111222
  Serious: Yes (Hospitalization)
  Sender: FDA-Public Use
  Company Number: US-ABBOTT-11P-163-0843440-00

PATIENT

DRUGS (3)
  1. HUMIRA [Suspect]
     Indication: CROHN'S DISEASE
  2. HUMIRA [Suspect]
     Indication: COLITIS
  3. HUMIRA [Suspect]

REACTIONS (2)
  - ABDOMINAL DISCOMFORT [None]
  - GASTROINTESTINAL INFLAMMATION [None]
